FAERS Safety Report 24966673 (Version 3)
Quarter: 2025Q3

REPORT INFORMATION
  Report Type: Report from Study
  Country: CA (occurrence: CA)
  Receive Date: 20250213
  Receipt Date: 20250912
  Transmission Date: 20251021
  Serious: Yes (Death, Other)
  Sender: DAIICHI
  Company Number: CA-AstraZeneca-CH-00800707A

PATIENT
  Sex: Female

DRUGS (1)
  1. ENHERTU [Suspect]
     Active Substance: FAM-TRASTUZUMAB DERUXTECAN-NXKI
     Indication: HER2 positive breast cancer
     Dosage: 246 MG, ONCE EVERY 3 WK
     Route: 042
     Dates: start: 20220628, end: 20250103

REACTIONS (5)
  - Failure to thrive [Fatal]
  - Weight decreased [Fatal]
  - Asthenia [Fatal]
  - Toxicity to various agents [Fatal]
  - Metastases to central nervous system [Fatal]

NARRATIVE: CASE EVENT DATE: 20250101
